FAERS Safety Report 10850386 (Version 2)
Quarter: 2015Q1

REPORT INFORMATION
  Report Type: Spontaneous
  Country: JP (occurrence: JP)
  Receive Date: 20150222
  Receipt Date: 20150305
  Transmission Date: 20150721
  Serious: Yes (Hospitalization, Other)
  Sender: FDA-Public Use
  Company Number: JP-TEVA-542240ISR

PATIENT
  Age: 60 Year
  Sex: Male
  Weight: 51.4 kg

DRUGS (2)
  1. GIMERACIL, OTERACIL, TEGAFUR [Suspect]
     Active Substance: GIMERACIL\OTERACIL\TEGAFUR
     Indication: GASTRIC CANCER STAGE IV
     Route: 065
  2. CISPLATIN. [Suspect]
     Active Substance: CISPLATIN
     Indication: GASTRIC CANCER STAGE IV
     Route: 065

REACTIONS (1)
  - Gastric perforation [Recovering/Resolving]
